FAERS Safety Report 17357321 (Version 1)
Quarter: 2020Q1

REPORT INFORMATION
  Report Type: Spontaneous
  Country: US (occurrence: US)
  Receive Date: 20200131
  Receipt Date: 20200131
  Transmission Date: 20200409
  Serious: Yes (Life-Threatening, Hospitalization, Other)
  Sender: FDA-Public Use
  Company Number: US-AMGEN-USASP2020014012

PATIENT

DRUGS (5)
  1. GOSSYPOL ACETIC ACID [Concomitant]
     Indication: SMALL CELL LUNG CANCER
     Dosage: 40 MILLIGRAM, BID (DAYS 1-3) CYCLIC
     Route: 048
  2. NEULASTA [Suspect]
     Active Substance: PEGFILGRASTIM
     Indication: FEBRILE NEUTROPENIA
     Dosage: 6 MILLIGRAM, QD (ON DAY OF 5 OF SUBSEQUENT CYCLE 1) CYCLICAL
     Route: 058
  3. ETOPOSIDE. [Concomitant]
     Active Substance: ETOPOSIDE
     Indication: SMALL CELL LUNG CANCER
     Dosage: 120 MILLIGRAM/SQ. METER, Q3WK (DAY 1 OF A 21 DAY CYCLE ) CYCLIC
     Route: 048
  4. NEULASTA [Suspect]
     Active Substance: PEGFILGRASTIM
     Indication: PROPHYLAXIS
     Dosage: 6 MILLIGRAM, QD (ON DAY OF 5 OF SUBSEQUENT CYCLE 1) CYCLICAL
     Route: 058
  5. CISPLATIN. [Concomitant]
     Active Substance: CISPLATIN
     Indication: SMALL CELL LUNG CANCER
     Dosage: 60 MILLIGRAM/SQ. METER, Q3WK (DAYS 1-3) CYCLIC
     Route: 048

REACTIONS (29)
  - Hypotension [Unknown]
  - Nausea [Unknown]
  - Bone marrow failure [Unknown]
  - Dysgeusia [Unknown]
  - Vomiting [Unknown]
  - Leukopenia [Unknown]
  - Pneumonia [Unknown]
  - Acute kidney injury [Unknown]
  - Headache [Unknown]
  - Constipation [Unknown]
  - Therapy partial responder [Unknown]
  - Disease progression [Unknown]
  - Abdominal pain [Unknown]
  - Anaemia [Unknown]
  - Dyspepsia [Unknown]
  - Chest pain [Unknown]
  - Hyponatraemia [Unknown]
  - Pulmonary embolism [Unknown]
  - Acute myocardial infarction [Unknown]
  - Febrile neutropenia [Unknown]
  - Pollakiuria [Unknown]
  - Diarrhoea [Unknown]
  - Thrombocytopenia [Unknown]
  - Alopecia [Unknown]
  - Dyspnoea [Unknown]
  - Neutropenia [Unknown]
  - Hypophosphataemia [Unknown]
  - Decreased appetite [Unknown]
  - Fatigue [Unknown]
